FAERS Safety Report 9842556 (Version 1)
Quarter: 2014Q1

REPORT INFORMATION
  Report Type: Spontaneous
  Country: US (occurrence: US)
  Receive Date: 20140124
  Receipt Date: 20140124
  Transmission Date: 20141002
  Serious: No
  Sender: FDA-Public Use
  Company Number: US-GILEAD-2011-0046351

PATIENT
  Age: 74 Year
  Sex: Female

DRUGS (9)
  1. RANEXA [Suspect]
     Indication: PRODUCT USED FOR UNKNOWN INDICATION
     Dosage: 500 MG, BID
     Route: 048
     Dates: start: 201108
  2. PREDNISONE [Concomitant]
     Dosage: 10 MG, UNK
     Dates: end: 2011
  3. PREDNISONE [Concomitant]
     Dosage: 20 MG, UNK
     Dates: end: 2011
  4. CEPHALEXIN                         /00145501/ [Concomitant]
  5. OMEPRAZOLE [Concomitant]
  6. EQUATE [Concomitant]
  7. TOPROL XL [Concomitant]
  8. LIVALOR [Concomitant]
  9. NEBULIZER [Concomitant]

REACTIONS (2)
  - Dizziness postural [Unknown]
  - Vision blurred [Recovering/Resolving]
